FAERS Safety Report 8055649-4 (Version None)
Quarter: 2012Q1

REPORT INFORMATION
  Report Type: 
  Country: None (occurrence: None)
  Receive Date: 20120119
  Receipt Date: 20120109
  Transmission Date: 20120608
  Serious: Yes (Other)
  Sender: FDA-Public Use
  Company Number: US-JNJFOC-20120104744

PATIENT
  Sex: Female
  Weight: 64.86 kg

DRUGS (5)
  1. REMICADE [Suspect]
     Route: 042
     Dates: end: 20110713
  2. IMURAN [Concomitant]
     Route: 065
  3. IMURAN [Concomitant]
     Route: 065
  4. REMICADE [Suspect]
     Indication: CROHN'S DISEASE
     Route: 042
     Dates: start: 20080501
  5. IMURAN [Concomitant]
     Route: 065

REACTIONS (8)
  - MEMORY IMPAIRMENT [None]
  - HEADACHE [None]
  - BREAST PAIN [None]
  - PAIN IN EXTREMITY [None]
  - MALAISE [None]
  - INFUSION RELATED REACTION [None]
  - VEIN PAIN [None]
  - SPEECH DISORDER [None]
